FAERS Safety Report 5007864-1 (Version None)
Quarter: 2006Q2

REPORT INFORMATION
  Report Type: 
  Country: None (occurrence: None)
  Receive Date: 20060522
  Receipt Date: 20060509
  Transmission Date: 20061013
  Serious: Yes (Other)
  Sender: FDA-Public Use
  Company Number: PHBS2006JP07099

PATIENT

DRUGS (1)
  1. NEORAL [Suspect]
     Indication: POLYMYOSITIS
     Dosage: 200 MG/D
     Route: 048

REACTIONS (1)
  - HYPOPHOSPHATAEMIA [None]
